FAERS Safety Report 9254607 (Version 3)
Quarter: 2013Q3

REPORT INFORMATION
  Report Type: Report from Study
  Country: DE (occurrence: DE)
  Receive Date: 20130425
  Receipt Date: 20130708
  Transmission Date: 20140515
  Serious: Yes (Hospitalization, Other)
  Sender: FDA-Public Use
  Company Number: DE-ASTELLAS-2013US004308

PATIENT
  Age: 51 Year
  Sex: Male
  Weight: 72 kg

DRUGS (11)
  1. ERLOTINIB TABLET [Suspect]
     Indication: PANCREATIC CARCINOMA
     Dosage: 100 MG, UID/QD
     Route: 048
     Dates: start: 20121122, end: 20130227
  2. GEMCITABINE /01215702/ [Suspect]
     Indication: PANCREATIC CARCINOMA
     Dosage: 1800 MG, WEEKLY
     Route: 042
     Dates: start: 20121122, end: 20130227
  3. PREDNISOLON /00016201/ [Suspect]
     Indication: PRODUCT USED FOR UNKNOWN INDICATION
     Dosage: 35 MG, UNKNOWN/D
     Route: 065
     Dates: start: 20130227
  4. 5-FU /00098801/ [Suspect]
     Indication: PANCREATIC CARCINOMA
     Dosage: UNK
     Route: 065
     Dates: start: 20130318
  5. RANITIDINE [Concomitant]
     Indication: PRODUCT USED FOR UNKNOWN INDICATION
     Dosage: 300 MG, UNK
     Route: 065
     Dates: start: 20120215
  6. MINOCYCLINE HCL [Concomitant]
     Indication: PRODUCT USED FOR UNKNOWN INDICATION
     Dosage: 100 MG, UNKNOWN/D
     Route: 065
     Dates: start: 20121203
  7. ENOXAPARIN                         /01708202/ [Concomitant]
     Indication: PRODUCT USED FOR UNKNOWN INDICATION
     Dosage: 0.4 ML, UID/QD
     Route: 065
     Dates: start: 20130110
  8. OXALIPLATIN [Concomitant]
     Indication: PRODUCT USED FOR UNKNOWN INDICATION
     Dosage: UNK
     Route: 065
     Dates: start: 20130318
  9. IRINOTECAN                         /01280202/ [Concomitant]
     Indication: PRODUCT USED FOR UNKNOWN INDICATION
     Dosage: UNK
     Route: 065
     Dates: start: 20130318
  10. FOLINIC ACID [Concomitant]
     Indication: PRODUCT USED FOR UNKNOWN INDICATION
     Dosage: UNK
     Route: 065
     Dates: start: 20130318
  11. COTRIMAXAZOLE [Concomitant]
     Indication: PRODUCT USED FOR UNKNOWN INDICATION
     Dosage: 960 MG, UNKNOWN/D
     Route: 065
     Dates: start: 20130318

REACTIONS (4)
  - Myocarditis [Unknown]
  - Interstitial lung disease [Recovered/Resolved with Sequelae]
  - Metastases to lung [Unknown]
  - Left ventricular dysfunction [Recovered/Resolved with Sequelae]
